FAERS Safety Report 11410610 (Version 8)
Quarter: 2017Q4

REPORT INFORMATION
  Report Type: Spontaneous
  Country: US (occurrence: US)
  Receive Date: 20150824
  Receipt Date: 20171110
  Transmission Date: 20180320
  Serious: Yes (Hospitalization, Other)
  Sender: FDA-Public Use
  Company Number: US-PFIZER INC-2015277371

PATIENT
  Age: 45 Year
  Sex: Male
  Weight: 100 kg

DRUGS (12)
  1. HYDROCHLOROTHIAZIDE. [Concomitant]
     Active Substance: HYDROCHLOROTHIAZIDE
     Indication: CARDIAC DISORDER
     Dosage: 25 MG, 1X/DAY
  2. VIAGRA [Suspect]
     Active Substance: SILDENAFIL CITRATE
     Indication: ERECTILE DYSFUNCTION
     Dosage: 100 MG, ONCE EVERY TWO WEEKS
     Route: 048
     Dates: end: 20150809
  3. NEURONTIN [Concomitant]
     Active Substance: GABAPENTIN
     Indication: NEUROPATHY PERIPHERAL
  4. TRAZODONE [Suspect]
     Active Substance: TRAZODONE HYDROCHLORIDE
     Indication: SLEEP DISORDER
     Dosage: 100 MG, 1X/DAY, AT NIGHT
     Route: 048
     Dates: start: 2013
  5. LITHIUM. [Suspect]
     Active Substance: LITHIUM
     Indication: BIPOLAR DISORDER
     Dosage: 2 WHITE GOLD CAPSULES ONCE A DAY
  6. NEURONTIN [Concomitant]
     Active Substance: GABAPENTIN
     Indication: SEIZURE
     Dosage: 500 MG, 2X/DAY
  7. SEROQUEL [Suspect]
     Active Substance: QUETIAPINE FUMARATE
     Indication: SLEEP DISORDER
     Dosage: 50 MG, 1X/DAY (TWO 25MG A DAY)
  8. OMEGA ACID [Concomitant]
     Dosage: UNK
  9. NAPROXEN. [Concomitant]
     Active Substance: NAPROXEN
     Indication: SWELLING
     Dosage: 2 OF 500MG A DAY
  10. MULTIVITAMIN [Concomitant]
     Active Substance: VITAMINS
     Dosage: UNK
  11. OXYCODONE [Concomitant]
     Active Substance: OXYCODONE
     Indication: BONE PAIN
     Dosage: UNK, 1X/DAY, (EVERY NIGHT )
  12. DEPAKOTE [Suspect]
     Active Substance: DIVALPROEX SODIUM
     Indication: BIPOLAR DISORDER
     Dosage: 500 MG, 4X/DAY

REACTIONS (20)
  - Weight decreased [Recovered/Resolved]
  - Erectile dysfunction [Not Recovered/Not Resolved]
  - Genital rash [Unknown]
  - Contusion [Recovering/Resolving]
  - Penile swelling [Not Recovered/Not Resolved]
  - Insomnia [Not Recovered/Not Resolved]
  - Nightmare [Not Recovered/Not Resolved]
  - Penile vascular disorder [Recovered/Resolved]
  - Post procedural haemorrhage [Unknown]
  - Rapid eye movements sleep abnormal [Recovered/Resolved]
  - Depression [Unknown]
  - Skin discolouration [Recovering/Resolving]
  - Haematemesis [Recovered/Resolved]
  - Penis disorder [Unknown]
  - Fatigue [Unknown]
  - Priapism [Recovered/Resolved]
  - Pain [Not Recovered/Not Resolved]
  - Seizure [Unknown]
  - Decreased appetite [Recovered/Resolved]
  - Scar [Not Recovered/Not Resolved]

NARRATIVE: CASE EVENT DATE: 201508
